FAERS Safety Report 14909956 (Version 1)
Quarter: 2018Q2

REPORT INFORMATION
  Report Type: Spontaneous
  Country: US (occurrence: US)
  Receive Date: 20180517
  Receipt Date: 20180517
  Transmission Date: 20180711
  Serious: No
  Sender: FDA-Public Use
  Company Number: US-TARO-2017TAR00772

PATIENT
  Sex: Female

DRUGS (1)
  1. TERCONAZOLE VAGINAL CREAM (UNKNOWN) [Suspect]
     Active Substance: TERCONAZOLE
     Indication: FUNGAL INFECTION

REACTIONS (1)
  - Drug effect incomplete [Unknown]
